FAERS Safety Report 8577184-7 (Version None)
Quarter: 2012Q3

REPORT INFORMATION
  Report Type: 
  Country: None (occurrence: None)
  Receive Date: 20120807
  Receipt Date: 20120730
  Transmission Date: 20120928
  Serious: Yes (Death)
  Sender: FDA-Public Use
  Company Number: TH-BAXTER-2012BAX013087

PATIENT
  Sex: Male

DRUGS (1)
  1. DIANEAL PD4 LOW CALCIUM WITH 1.5% DEXTROSE [Suspect]
     Route: 033
     Dates: start: 20100622, end: 20120627

REACTIONS (1)
  - CARDIAC FAILURE ACUTE [None]
